FAERS Safety Report 4320861-4 (Version None)
Quarter: 2004Q1

REPORT INFORMATION
  Report Type: 
  Country: None (occurrence: None)
  Receive Date: 20040322
  Receipt Date: 20040314
  Transmission Date: 20041129
  Serious: Yes (Other)
  Sender: FDA-Public Use
  Company Number: PHBS2004BR03685

PATIENT
  Age: 65 Year
  Sex: Male

DRUGS (2)
  1. TRILEPTAL [Suspect]
     Indication: CEREBRAL DISORDER
     Dosage: 2 TABLETS DAILY
     Route: 048
  2. TIROXINA [Concomitant]
     Indication: HORMONE REPLACEMENT THERAPY
     Route: 048

REACTIONS (6)
  - BLOOD THYROID STIMULATING HORMONE INCREASED [None]
  - INSOMNIA [None]
  - INTRAOCULAR PRESSURE DECREASED [None]
  - SLEEP DISORDER [None]
  - UNEXPECTED THERAPEUTIC DRUG EFFECT [None]
  - VISION BLURRED [None]
